FAERS Safety Report 5845237-X (Version None)
Quarter: 2008Q3

REPORT INFORMATION
  Report Type: 
  Country: None (occurrence: None)
  Receive Date: 20080814
  Receipt Date: 20080808
  Transmission Date: 20090109
  Serious: Yes (Other)
  Sender: FDA-Public Use
  Company Number: B0531589A

PATIENT
  Age: 55 Year
  Sex: Female
  Weight: 89.6 kg

DRUGS (3)
  1. ROSIGLITAZONE [Suspect]
     Dosage: 4MG PER DAY
     Route: 048
     Dates: start: 20020613
  2. GLIPIZIDE [Concomitant]
     Dosage: 2.5MG PER DAY
     Route: 048
     Dates: start: 20080729
  3. NOVEL [Concomitant]
     Indication: HORMONE REPLACEMENT THERAPY
     Route: 048

REACTIONS (2)
  - INCREASED TENDENCY TO BRUISE [None]
  - OSTEOPOROSIS [None]
